FAERS Safety Report 12953409 (Version 1)
Quarter: 2016Q4

REPORT INFORMATION
  Report Type: Spontaneous
  Country: GR (occurrence: GR)
  Receive Date: 20161117
  Receipt Date: 20161117
  Transmission Date: 20170207
  Serious: Yes (Death, Hospitalization)
  Sender: FDA-Public Use
  Company Number: GR-SA-2016SA209180

PATIENT
  Age: 56 Year
  Sex: Male

DRUGS (8)
  1. TAVOR (LORAZEPAM) [Concomitant]
     Active Substance: LORAZEPAM
  2. NOZINAN [Concomitant]
     Active Substance: LEVOMEPROMAZINE
  3. AKINETON [Concomitant]
     Active Substance: BIPERIDEN HYDROCHLORIDE
  4. SOLOSA [Suspect]
     Active Substance: GLIMEPIRIDE
     Route: 048
     Dates: start: 20130510, end: 20130510
  5. OLANZAPINE. [Concomitant]
     Active Substance: OLANZAPINE
  6. ALOPERIDIN [Concomitant]
     Active Substance: HALOPERIDOL
  7. SOLOSA [Suspect]
     Active Substance: GLIMEPIRIDE
     Dosage: X3/DAY
     Route: 048
     Dates: start: 20130511, end: 20130513
  8. RISPERIDONE. [Concomitant]
     Active Substance: RISPERIDONE

REACTIONS (3)
  - Accidental exposure to product [Unknown]
  - Overdose [Unknown]
  - Death [Fatal]
